FAERS Safety Report 9049996 (Version 1)
Quarter: 2013Q1

REPORT INFORMATION
  Report Type: Report from Study
  Country: US (occurrence: US)
  Receive Date: 20130205
  Receipt Date: 20130205
  Transmission Date: 20140127
  Serious: Yes (Hospitalization, Other)
  Sender: FDA-Public Use
  Company Number: US-US-EMD SERONO, INC.-7190929

PATIENT
  Age: 74 None
  Sex: Male

DRUGS (6)
  1. REBIF [Suspect]
     Indication: MULTIPLE SCLEROSIS
     Route: 058
     Dates: start: 20021127
  2. NUVIGIL [Concomitant]
     Indication: POOR QUALITY SLEEP
  3. TIZANIDINE [Concomitant]
     Indication: MUSCLE RELAXANT THERAPY
  4. PROTONIX [Concomitant]
     Indication: DYSPEPSIA
  5. CRESTOR [Concomitant]
     Indication: BLOOD CHOLESTEROL INCREASED
  6. ASPIRIN [Concomitant]
     Indication: BLOOD CHOLESTEROL INCREASED

REACTIONS (5)
  - Diarrhoea [Recovered/Resolved]
  - Prostate cancer [Recovered/Resolved]
  - Heart valve incompetence [Not Recovered/Not Resolved]
  - Asthenia [Not Recovered/Not Resolved]
  - Injection site nodule [Not Recovered/Not Resolved]
